FAERS Safety Report 17722361 (Version 2)
Quarter: 2020Q2

REPORT INFORMATION
  Report Type: Spontaneous
  Country: US (occurrence: US)
  Receive Date: 20200429
  Receipt Date: 20200505
  Transmission Date: 20200714
  Serious: No
  Sender: FDA-Public Use
  Company Number: US-PFIZER INC-2019219172

PATIENT
  Age: 75 Year
  Sex: Male
  Weight: 118 kg

DRUGS (4)
  1. LYRICA [Suspect]
     Active Substance: PREGABALIN
     Indication: DIABETIC NEUROPATHY
     Dosage: 50 MG, 3X/DAY
     Route: 048
  2. LYRICA [Suspect]
     Active Substance: PREGABALIN
     Indication: NEURALGIA
     Dosage: 50 MG, 2X/DAY
     Route: 048
  3. LYRICA [Suspect]
     Active Substance: PREGABALIN
     Indication: PAIN IN EXTREMITY
     Dosage: 50 MG, 3X/DAY
     Route: 048
     Dates: start: 202004
  4. LYRICA [Suspect]
     Active Substance: PREGABALIN
     Dosage: 50 MG
     Route: 048

REACTIONS (2)
  - Intentional product use issue [Unknown]
  - Burning sensation [Unknown]

NARRATIVE: CASE EVENT DATE: 202004
